FAERS Safety Report 9186062 (Version 2)
Quarter: 2013Q2

REPORT INFORMATION
  Report Type: Report from Study
  Country: CA (occurrence: CA)
  Receive Date: 20130325
  Receipt Date: 20130401
  Transmission Date: 20140414
  Serious: Yes (Death, Hospitalization)
  Sender: FDA-Public Use
  Company Number: CA-ABBOTT-13P-028-1065324-00

PATIENT
  Age: 68 Year
  Sex: Male
  Weight: 86.26 kg

DRUGS (2)
  1. HUMIRA [Suspect]
     Indication: PSORIASIS
     Route: 058
     Dates: start: 20100812, end: 20100812
  2. HUMIRA [Suspect]
     Route: 058
     Dates: start: 20101028, end: 20110428

REACTIONS (8)
  - Coronary artery disease [Recovered/Resolved]
  - Dyspnoea exertional [Recovered/Resolved]
  - Coronary artery stenosis [Recovered/Resolved]
  - Aortic aneurysm [Recovered/Resolved]
  - Femoral artery occlusion [Fatal]
  - Graft ischaemia [Fatal]
  - Femoral artery occlusion [Fatal]
  - Iliac artery occlusion [Fatal]
